FAERS Safety Report 6278432-9 (Version None)
Quarter: 2009Q3

REPORT INFORMATION
  Report Type: 
  Country: None (occurrence: None)
  Receive Date: 20090721
  Receipt Date: 20090702
  Transmission Date: 20100115
  Serious: Yes (Other)
  Sender: FDA-Public Use
  Company Number: 20090282

PATIENT
  Age: 80 Year
  Sex: Male

DRUGS (1)
  1. VENOFER [Suspect]
     Dosage: INTRAVENOUS
     Route: 042

REACTIONS (2)
  - CEREBROVASCULAR ACCIDENT [None]
  - HYPOTENSION [None]
